FAERS Safety Report 8130621-4 (Version None)
Quarter: 2012Q1

REPORT INFORMATION
  Report Type: 
  Country: None (occurrence: None)
  Receive Date: 20120213
  Receipt Date: 20120206
  Transmission Date: 20120608
  Serious: Yes (Life-Threatening, Hospitalization)
  Sender: FDA-Public Use
  Company Number: CZ-BIOGENIDEC-2011BI042096

PATIENT
  Age: 33 Year
  Sex: Female

DRUGS (9)
  1. TYSABRI [Suspect]
     Indication: MULTIPLE SCLEROSIS
     Dates: start: 20100730
  2. TYSABRI [Suspect]
     Dates: start: 20100730
  3. TYSABRI [Suspect]
     Dates: start: 20100730
  4. CALCIUM [Concomitant]
  5. TYSABRI [Suspect]
     Dates: start: 20100730
  6. TYSABRI [Suspect]
     Dates: start: 20100730
  7. TYSABRI [Suspect]
     Dates: start: 20100730
  8. TYSABRI [Suspect]
     Dates: start: 20100730
  9. CHOLECALCIFEROL [Concomitant]

REACTIONS (1)
  - INTRAOCULAR MELANOMA [None]
